FAERS Safety Report 12413128 (Version 1)
Quarter: 2016Q2

REPORT INFORMATION
  Report Type: Spontaneous
  Country: JP (occurrence: JP)
  Receive Date: 20160527
  Receipt Date: 20160527
  Transmission Date: 20160815
  Serious: Yes (Death, Hospitalization, Other)
  Sender: FDA-Public Use
  Company Number: JP-BAYER-2015-493753

PATIENT
  Age: 70 Year
  Sex: Male

DRUGS (7)
  1. OXYCODONE [Concomitant]
     Active Substance: OXYCODONE
     Indication: RECTAL CANCER
     Dosage: DAILY DOSE 4 DF
     Route: 048
  2. STIVARGA [Suspect]
     Active Substance: REGORAFENIB
     Indication: COLORECTAL CANCER
     Dosage: 120 MG, QD ON FOR 3 WEEKS AND OFF FOR 1 WEEK
     Route: 048
     Dates: start: 20151118, end: 20151124
  3. TRYPTANOL [Concomitant]
     Active Substance: AMITRIPTYLINE
     Dosage: DAILY DOSE 20 MG
     Route: 048
     Dates: start: 20151111, end: 20151226
  4. STIVARGA [Suspect]
     Active Substance: REGORAFENIB
     Indication: COLORECTAL CANCER
     Dosage: 160 MG, QD ON FOR 3 WEEKS AND OFF FOR 1 WEEK
     Route: 048
     Dates: start: 20151022, end: 2015
  5. LANSOPRAZOLE. [Concomitant]
     Active Substance: LANSOPRAZOLE
     Indication: RECTAL CANCER
     Dosage: DAILY DOSE 30 MG
     Route: 048
  6. STIVARGA [Suspect]
     Active Substance: REGORAFENIB
     Indication: COLORECTAL CANCER
     Dosage: 160 MG, QD ON FOR 3 WEEKS AND OFF FOR 1 WEEK
     Dates: start: 20151117
  7. LOXONIN [Concomitant]
     Active Substance: LOXOPROFEN SODIUM
     Indication: RECTAL CANCER
     Dosage: DAILY DOSE 180 MG
     Route: 048
     Dates: start: 20140402

REACTIONS (10)
  - Rectal cancer [Fatal]
  - Disorientation [Recovering/Resolving]
  - Pyrexia [Recovered/Resolved]
  - Delirium [Recovering/Resolving]
  - Posterior reversible encephalopathy syndrome [None]
  - Hypertension [Recovering/Resolving]
  - Restlessness [Recovering/Resolving]
  - Vision blurred [None]
  - Palmar-plantar erythrodysaesthesia syndrome [Recovering/Resolving]
  - Hallucination [Recovering/Resolving]

NARRATIVE: CASE EVENT DATE: 20151114
